FAERS Safety Report 12219486 (Version 1)
Quarter: 2016Q1

REPORT INFORMATION
  Report Type: Spontaneous
  Country: NL (occurrence: NL)
  Receive Date: 20160329
  Receipt Date: 20160329
  Transmission Date: 20160526
  Serious: Yes (Death, Hospitalization)
  Sender: FDA-Public Use
  Company Number: NL-EGALET US INC-NL-2016EGA000148

PATIENT

DRUGS (8)
  1. DEXAMETHASONE. [Suspect]
     Active Substance: DEXAMETHASONE
     Indication: PRODUCT USED FOR UNKNOWN INDICATION
     Dosage: 3 MG, DAILY
  2. OXYCODONE HYDROCHLORIDE. [Suspect]
     Active Substance: OXYCODONE HYDROCHLORIDE
     Indication: PRODUCT USED FOR UNKNOWN INDICATION
     Dosage: 20 MG, SIX TIMES A DAY
  3. DEXAMETHASONE. [Suspect]
     Active Substance: DEXAMETHASONE
     Dosage: 8 MG, BID
  4. FENTANYL. [Interacting]
     Active Substance: FENTANYL
     Dosage: 100 ?G, UNK
     Route: 062
  5. DEXAMETHASONE. [Suspect]
     Active Substance: DEXAMETHASONE
     Dosage: 10 MG, SINGLE
     Route: 042
  6. METOCLOPRAMIDE. [Suspect]
     Active Substance: METOCLOPRAMIDE
     Indication: PRODUCT USED FOR UNKNOWN INDICATION
     Dosage: UNK
  7. HEPARIN [Concomitant]
     Active Substance: HEPARIN SODIUM
     Indication: PROPHYLAXIS
     Dosage: UNK
  8. FENTANYL. [Interacting]
     Active Substance: FENTANYL
     Indication: PRODUCT USED FOR UNKNOWN INDICATION
     Dosage: 50 ?G, UNK
     Route: 062

REACTIONS (17)
  - Palpitations [Unknown]
  - Ventricular dysfunction [Not Recovered/Not Resolved]
  - Left ventricular hypertrophy [Unknown]
  - Cardiomegaly [Not Recovered/Not Resolved]
  - Neurological symptom [Recovering/Resolving]
  - Urine abnormality [Fatal]
  - Pulmonary oedema [Unknown]
  - Pulmonary embolism [Fatal]
  - Paraplegia [Unknown]
  - Tachypnoea [Unknown]
  - Jugular vein distension [Unknown]
  - Hyperhidrosis [Unknown]
  - Cardiomyopathy [Fatal]
  - Sinus tachycardia [Unknown]
  - Condition aggravated [Unknown]
  - Electrocardiogram repolarisation abnormality [Unknown]
  - Normetanephrine urine increased [Fatal]
